FAERS Safety Report 7321778-3 (Version None)
Quarter: 2011Q1

REPORT INFORMATION
  Report Type: 
  Country: None (occurrence: None)
  Receive Date: 20110215
  Receipt Date: 20110107
  Transmission Date: 20110831
  Serious: Yes (Death, Disabling, Other)
  Sender: FDA-Public Use
  Company Number: ALA_01170_2010

PATIENT
  Sex: Male

DRUGS (44)
  1. REGLAN [Suspect]
     Indication: GASTROOESOPHAGEAL REFLUX DISEASE
     Dosage: (10 MG  BEFORE MEALS AND AT BEDTIME ORAL)
     Route: 048
     Dates: start: 19991012, end: 20070101
  2. REGLAN [Suspect]
     Indication: DIABETIC GASTROPARESIS
     Dosage: (10 MG  BEFORE MEALS AND AT BEDTIME ORAL)
     Route: 048
     Dates: start: 19991012, end: 20070101
  3. NPH INSULIN [Concomitant]
  4. TERAZOSIN [Concomitant]
  5. BUSPIRONE [Concomitant]
  6. TRAZODONE HCL [Concomitant]
  7. CATAPRESAN /00171101/ [Concomitant]
  8. BECLOMETHASONE DIPROPIONATE /00212602/ [Concomitant]
  9. NORVASC [Concomitant]
  10. GUAIFENESIN [Concomitant]
  11. SALMETEROL [Concomitant]
  12. CELEXA [Concomitant]
  13. ASPIRIN [Concomitant]
  14. FLUNISOLIDE [Concomitant]
  15. DOCUSATE [Concomitant]
  16. ATORVASTATIN [Concomitant]
  17. GEMFIBROZIL [Concomitant]
  18. SULINDAC [Concomitant]
  19. AQUAPHOR /01181901/ [Concomitant]
  20. DESONIDE [Concomitant]
  21. DANTROLENE SODIUM [Concomitant]
  22. EZETIMIBE [Concomitant]
  23. CLOTRIMAZOLE [Concomitant]
  24. WARFARIN [Concomitant]
  25. NIACIN [Concomitant]
  26. HYDROCHLOROTHIAZIDE [Concomitant]
  27. SERTRALINE [Concomitant]
  28. FISH OIL [Concomitant]
  29. TRICOR [Concomitant]
  30. COGENTIN [Concomitant]
  31. ATENOLOL [Concomitant]
  32. KETOCONAZOLE [Concomitant]
  33. AMITRIPTYLINE [Concomitant]
  34. ALBUTEROL [Concomitant]
  35. IPRATROPIUM BROMIDE [Concomitant]
  36. SELENIUM SULFIDE [Concomitant]
  37. FELODIPINE [Concomitant]
  38. NITROGLYCERIN [Concomitant]
  39. HYDROXYZINE [Concomitant]
  40. ADVAIR DISKUS 100/50 [Concomitant]
  41. HALOPERIDOL [Concomitant]
  42. PROTONIX [Concomitant]
  43. IRON [Concomitant]
  44. GUAIFENESIN [Concomitant]

REACTIONS (29)
  - CARDIOMYOPATHY [None]
  - ABNORMAL BEHAVIOUR [None]
  - DIARRHOEA [None]
  - DYSKINESIA [None]
  - ANAEMIA [None]
  - CEREBROVASCULAR ACCIDENT [None]
  - EXTRAPYRAMIDAL DISORDER [None]
  - SEXUALLY INAPPROPRIATE BEHAVIOUR [None]
  - RECTAL HAEMORRHAGE [None]
  - SOMNOLENCE [None]
  - DROOLING [None]
  - TARDIVE DYSKINESIA [None]
  - COMMUNICATION DISORDER [None]
  - IRRITABILITY [None]
  - INSOMNIA [None]
  - HAEMATOCHEZIA [None]
  - CAROTID ARTERY STENOSIS [None]
  - EMOTIONAL DISORDER [None]
  - GASTROINTESTINAL HAEMORRHAGE [None]
  - NOSOCOMIAL INFECTION [None]
  - SLEEP APNOEA SYNDROME [None]
  - ECONOMIC PROBLEM [None]
  - MEMORY IMPAIRMENT [None]
  - EPISTAXIS [None]
  - RESPIRATORY FAILURE [None]
  - ASPIRATION [None]
  - PULSELESS ELECTRICAL ACTIVITY [None]
  - ARTERIOSCLEROSIS [None]
  - PSEUDOMONAS INFECTION [None]
